FAERS Safety Report 9709210 (Version 2)
Quarter: 2014Q2

REPORT INFORMATION
  Report Type: Spontaneous
  Country: GB (occurrence: GB)
  Receive Date: 20131125
  Receipt Date: 20140422
  Transmission Date: 20141212
  Serious: Yes (Death, Hospitalization, Other)
  Sender: FDA-Public Use
  Company Number: PHHY2013GB133610

PATIENT
  Age: 38 Year
  Sex: Female

DRUGS (2)
  1. CO-CODAMOL [Suspect]
     Indication: PRODUCT USED FOR UNKNOWN INDICATION
  2. GAVISCON [Suspect]
     Indication: DYSPEPSIA

REACTIONS (8)
  - Cardiac tamponade [Fatal]
  - Aortic dissection [Fatal]
  - Bicuspid aortic valve [Fatal]
  - Cardiac failure [Fatal]
  - Circumstance or information capable of leading to medication error [Fatal]
  - Myocardial rupture [Fatal]
  - Vomiting [Unknown]
  - Maternal exposure during pregnancy [Unknown]
